FAERS Safety Report 16009869 (Version 1)
Quarter: 2019Q1

REPORT INFORMATION
  Report Type: Spontaneous
  Country: CA (occurrence: CA)
  Receive Date: 20190227
  Receipt Date: 20190227
  Transmission Date: 20190418
  Serious: Yes (Other)
  Sender: FDA-Public Use
  Company Number: CA-TOLMAR, INC.-2018CA009480

PATIENT

DRUGS (92)
  1. BOSWELLIA [Suspect]
     Active Substance: DIETARY SUPPLEMENT\HERBALS
     Indication: PRODUCT USED FOR UNKNOWN INDICATION
     Dosage: UNK
     Route: 065
     Dates: end: 201705
  2. SAGE                               /01469401/ [Suspect]
     Active Substance: SAGE
     Indication: PRODUCT USED FOR UNKNOWN INDICATION
     Dosage: UNK
     Route: 065
     Dates: end: 201705
  3. DENOSUMAB [Concomitant]
     Active Substance: DENOSUMAB
     Dosage: UNK
     Dates: start: 20160108
  4. AEGLE MARMELOS [Concomitant]
     Dosage: UNK
     Dates: end: 201705
  5. ALLIUM SATIVUM [Concomitant]
     Dosage: UNK
     Dates: end: 201705
  6. ARJUNA FLOW [Concomitant]
     Dosage: UNK
     Dates: end: 201705
  7. ASPARAGUS. [Concomitant]
     Active Substance: ASPARAGUS
     Dosage: UNK
     Dates: end: 201705
  8. HORNY GOAT WEED [Concomitant]
     Dosage: UNK
     Dates: end: 201705
  9. SAW PALMETTO                       /00833501/ [Concomitant]
     Active Substance: HERBALS\SAW PALMETTO
     Dosage: UNK
     Dates: end: 201705
  10. TULSI [Concomitant]
     Dosage: UNK
     Dates: end: 201705
  11. TURMERIC [Concomitant]
     Active Substance: HERBALS\TURMERIC
     Dosage: UNK
     Dates: end: 201705
  12. XTANDI [Suspect]
     Active Substance: ENZALUTAMIDE
     Indication: HORMONE-REFRACTORY PROSTATE CANCER
     Dosage: 160 MG, ONCE DAILY
     Route: 048
     Dates: start: 20160118, end: 20170821
  13. ALOE                               /01332701/ [Suspect]
     Active Substance: ALOE
     Indication: PRODUCT USED FOR UNKNOWN INDICATION
     Dosage: UNK
     Route: 065
     Dates: end: 201705
  14. LICORICE                           /01125801/ [Suspect]
     Active Substance: HERBS\LICORICE
     Indication: PRODUCT USED FOR UNKNOWN INDICATION
     Dosage: UNK
     Route: 065
     Dates: end: 201705
  15. MILK THISTLE [Suspect]
     Active Substance: DIETARY SUPPLEMENT\HERBALS\MILK THISTLE
     Indication: PRODUCT USED FOR UNKNOWN INDICATION
     Dosage: UNK
     Route: 065
     Dates: end: 201705
  16. CALENDULA OFFICINALIS [Concomitant]
     Active Substance: HOMEOPATHICS
     Dosage: UNK
     Dates: end: 201705
  17. CHONDROITIN [Concomitant]
     Active Substance: CHONDROITIN
     Dosage: UNK
     Dates: end: 201705
  18. GARCINIA CAMBOGIA [Concomitant]
     Active Substance: HERBALS\GARCINIA CAMBOGIA FRUIT
     Dosage: UNK
     Dates: end: 201705
  19. TEA [Concomitant]
     Active Substance: TEA LEAF
     Dosage: UNK
     Dates: end: 201705
  20. PEARL                              /00022701/ [Concomitant]
     Dosage: UNK
     Dates: end: 201705
  21. PIPER LONGUM [Concomitant]
     Dosage: UNK
     Dates: end: 201705
  22. VITAMIN C [Concomitant]
     Active Substance: ASCORBIC ACID
     Dosage: UNK
     Dates: end: 201705
  23. WORMWOOD [Concomitant]
     Active Substance: WORMWOOD
     Dosage: UNK
     Dates: end: 201705
  24. CYPROTERONE [Concomitant]
     Active Substance: CYPROTERONE
  25. SENNA                              /00571901/ [Concomitant]
     Active Substance: SENNOSIDES A AND B
  26. XTANDI [Suspect]
     Active Substance: ENZALUTAMIDE
     Dosage: UNK, UNKNOWN FREQ.
     Route: 065
     Dates: start: 20180306, end: 20180626
  27. GARLIC                             /01570501/ [Suspect]
     Active Substance: GARLIC
     Indication: PRODUCT USED FOR UNKNOWN INDICATION
     Dosage: UNK
     Route: 065
     Dates: end: 201705
  28. CATS CLAW /01453401/ [Suspect]
     Active Substance: HERBALS
     Indication: PRODUCT USED FOR UNKNOWN INDICATION
     Dosage: UNK
     Route: 065
     Dates: end: 201705
  29. RHUBARB. [Suspect]
     Active Substance: RHUBARB
     Indication: PRODUCT USED FOR UNKNOWN INDICATION
     Dosage: UNK
     Route: 065
     Dates: end: 201705
  30. BASIL FES [Concomitant]
     Active Substance: BASIL\HERBALS
     Dosage: UNK
     Dates: end: 201705
  31. CAYENNE [Concomitant]
     Dosage: UNK
     Dates: end: 201705
  32. VINE [Concomitant]
     Dosage: UNK
     Dates: end: 201705
  33. TRIPHALA [Concomitant]
     Dosage: UNK
     Dates: end: 201705
  34. VITAMIN D                          /00107901/ [Concomitant]
     Active Substance: ERGOCALCIFEROL
     Dosage: UNK
  35. IPECAC                             /00147003/ [Concomitant]
     Dosage: UNK
  36. ANNONA MURICATA [Concomitant]
     Dosage: UNK
     Dates: end: 201705
  37. BURDOCK [Concomitant]
     Dosage: UNK
     Dates: end: 201705
  38. CHICORY [Concomitant]
     Dosage: UNK
     Dates: end: 201705
  39. CYPRESS [Concomitant]
     Dosage: UNK
     Dates: end: 201705
  40. MAGNESIUM GLYCINATE [Concomitant]
     Active Substance: MAGNESIUM GLYCINATE
     Dosage: UNK
     Dates: end: 201705
  41. YOHIMBE BARK [Concomitant]
     Dosage: UNK
     Dates: end: 201705
  42. IPECAC                             /00147003/ [Concomitant]
  43. GINGKO BILOBA EXTR [Suspect]
     Active Substance: GINKGO
     Indication: PRODUCT USED FOR UNKNOWN INDICATION
     Dosage: UNK
     Route: 065
     Dates: end: 201705
  44. RHODIOLA [Suspect]
     Active Substance: HERBALS
     Indication: PRODUCT USED FOR UNKNOWN INDICATION
     Dosage: UNK
     Route: 065
     Dates: end: 201705
  45. CLOVE. [Concomitant]
     Active Substance: CLOVE
     Dosage: UNK
     Dates: end: 201705
  46. DANDELION [Concomitant]
     Active Substance: TARAXACUM OFFICINALE POLLEN
     Dosage: UNK
     Dates: end: 201705
  47. GLUCOSAMINE [Concomitant]
     Active Substance: GLUCOSAMINE
     Dosage: UNK
     Dates: end: 201705
  48. LYCOPENE [Concomitant]
     Active Substance: LYCOPENE
     Dosage: UNK
     Dates: end: 201705
  49. PORIA COCOS [Concomitant]
     Active Substance: HERBALS\SMILAX CHINA ROOT
     Dosage: UNK
     Dates: end: 201705
  50. PSYLLIUM                           /01328801/ [Concomitant]
     Active Substance: PLANTAGO SEED
     Dosage: UNK
     Dates: end: 201705
  51. ACTIVATED CHARCOAL. [Suspect]
     Active Substance: ACTIVATED CHARCOAL
     Indication: PRODUCT USED FOR UNKNOWN INDICATION
     Dosage: UNK
     Route: 065
     Dates: end: 201705
  52. BLACK WALNUT (JUGLANS NIGRA POLLEN) [Suspect]
     Active Substance: JUGLANS NIGRA POLLEN
     Indication: PRODUCT USED FOR UNKNOWN INDICATION
     Dosage: UNK
     Route: 065
     Dates: end: 201705
  53. ECHINACEA                          /01323501/ [Suspect]
     Active Substance: ECHINACEA PURPUREA
     Indication: PRODUCT USED FOR UNKNOWN INDICATION
     Dosage: UNK
     Route: 065
     Dates: end: 201705
  54. BERBERIS VULGARIS [Suspect]
     Active Substance: HERBALS
     Indication: PRODUCT USED FOR UNKNOWN INDICATION
     Dosage: UNK
     Route: 065
     Dates: end: 201705
  55. GUGGUL [Suspect]
     Active Substance: HERBALS
     Indication: PRODUCT USED FOR UNKNOWN INDICATION
     Dosage: UNK
     Route: 065
     Dates: end: 201705
  56. ARSENIC TRIOXIDE. [Concomitant]
     Active Substance: ARSENIC TRIOXIDE
     Dosage: UNK
     Dates: end: 201705
  57. ASTRAGALUS PROPINQUUS [Concomitant]
     Dosage: UNK
     Dates: end: 201705
  58. CARDAMOM [Concomitant]
     Active Substance: CARDAMOM
     Dosage: UNK
     Dates: end: 201705
  59. CHASTE TREE [Concomitant]
     Dosage: UNK
     Dates: end: 201705
  60. SKULLCAP                           /01183801/ [Concomitant]
     Dosage: UNK
     Dates: end: 201705
  61. CINNAMON                           /01647501/ [Concomitant]
     Active Substance: CINNAMON
     Dosage: UNK
     Dates: end: 201705
  62. DONG QUAI [Concomitant]
     Active Substance: ANGELICA SINENSIS ROOT
     Dosage: UNK
     Dates: end: 201705
  63. GRAPE SEED EXTRACT                 /01364603/ [Concomitant]
     Dosage: UNK
     Dates: end: 201705
  64. GYMNEMA SYLVESTRE LEAF [Concomitant]
     Dosage: UNK
     Dates: end: 201705
  65. HAWTHORN                           /01349301/ [Concomitant]
     Active Substance: HAWTHORN LEAF WITH FLOWER
     Dosage: UNK
     Dates: end: 201705
  66. KALMEGH [Concomitant]
     Dosage: UNK
     Dates: end: 201705
  67. MAGNESIUM [Concomitant]
     Active Substance: MAGNESIUM
     Dosage: UNK
     Dates: end: 201705
  68. PEONY [Concomitant]
     Dosage: UNK
     Dates: end: 201705
  69. TRIBULUS TERRESTRIS [Concomitant]
     Active Substance: HERBALS\TRIBULUS TERRESTRIS
     Dosage: UNK
     Dates: end: 201705
  70. WHITE WILLOW BARK [Concomitant]
     Dosage: UNK
     Dates: end: 201705
  71. ELIGARD [Suspect]
     Active Substance: LEUPROLIDE ACETATE
     Indication: HORMONE-REFRACTORY PROSTATE CANCER
     Dosage: UNK, UNKNOWN FREQ.
     Route: 065
     Dates: start: 20180306
  72. PANAX GINSENG [Suspect]
     Active Substance: ASIAN GINSENG
     Indication: PRODUCT USED FOR UNKNOWN INDICATION
     Dosage: UNK
     Route: 065
     Dates: end: 201705
  73. DOCOSAHEXAENOIC ACID [Concomitant]
     Active Substance: DOCONEXENT
     Dosage: UNK
  74. CALCIUM [Concomitant]
     Active Substance: CALCIUM
     Dosage: UNK
  75. ARSENICUM ALBUM [Concomitant]
     Dosage: UNK
     Dates: end: 201705
  76. CORAL                              /00340701/ [Concomitant]
     Dosage: UNK
     Dates: end: 201705
  77. GINGER ROOT [Concomitant]
     Active Substance: GINGER
     Dosage: UNK
     Dates: end: 201705
  78. JUNIPER BERRIES [Concomitant]
     Dosage: UNK
     Dates: end: 201705
  79. RUBIA CORDIFOLIA [Concomitant]
     Dosage: UNK
     Dates: end: 201705
  80. SEA BUCKTHORN [Concomitant]
     Dosage: UNK
     Dates: end: 201705
  81. SIDA CORDIFOLIA [Concomitant]
     Dosage: UNK
     Dates: end: 201705
  82. WILD YAM ROOT [Concomitant]
     Dosage: UNK
     Dates: end: 201705
  83. GOLDENSEAL [Suspect]
     Active Substance: HERBALS\HOMEOPATHICS\GOLDENSEAL
     Indication: PRODUCT USED FOR UNKNOWN INDICATION
     Dosage: UNK
     Route: 065
     Dates: end: 201705
  84. EICOSAPENTAENOIC ACID [Concomitant]
     Active Substance: ICOSAPENT
     Dosage: UNK
  85. ANGELICA SINENSIS [Concomitant]
     Active Substance: ANGELICA SINENSIS ROOT
     Dosage: UNK
     Dates: end: 201705
  86. APPLE CIDER VINEGAR [Concomitant]
     Active Substance: APPLE CIDER VINEGAR
     Dosage: UNK
     Dates: end: 201705
  87. ASHWAGANDHA [Concomitant]
     Active Substance: HERBALS
     Dosage: UNK
     Dates: end: 201705
  88. CATNIP [Concomitant]
     Dosage: UNK
     Dates: end: 201705
  89. GUAR GUM [Concomitant]
     Active Substance: GUAR GUM
     Dosage: UNK
     Dates: end: 201705
  90. MEZEREUM [Concomitant]
     Dosage: UNK
     Dates: end: 201705
  91. SARSAPARILLA [Concomitant]
     Dosage: UNK
     Dates: end: 201705
  92. WITHANIA SOMNIFERA [Concomitant]
     Active Substance: HERBALS
     Dosage: UNK
     Dates: end: 201705

REACTIONS (9)
  - Prostatic specific antigen increased [Not Recovered/Not Resolved]
  - Malignant neoplasm progression [Not Recovered/Not Resolved]
  - Urinary retention [Not Recovered/Not Resolved]
  - Blood testosterone increased [Not Recovered/Not Resolved]
  - Haematuria [Not Recovered/Not Resolved]
  - Drug ineffective [None]
  - Drug interaction [None]
  - Back pain [Not Recovered/Not Resolved]
  - Abdominal pain [Not Recovered/Not Resolved]

NARRATIVE: CASE EVENT DATE: 201705
